FAERS Safety Report 8600925-7 (Version None)
Quarter: 2012Q3

REPORT INFORMATION
  Report Type: 
  Country: None (occurrence: None)
  Receive Date: 20120817
  Receipt Date: 20120815
  Transmission Date: 20120928
  Serious: Yes (Death, Other)
  Sender: FDA-Public Use
  Company Number: DE-GENZYME-CAMP-1002311

PATIENT
  Sex: Female
  Weight: 54 kg

DRUGS (9)
  1. CYCLOPHOSPHAMIDE [Concomitant]
     Indication: T-CELL LYMPHOMA
     Dosage: UNK
     Route: 065
  2. MABCAMPATH [Suspect]
     Dosage: UNK; 2 TIMES
     Route: 065
  3. BISOPROLOL FUMARATE [Concomitant]
     Indication: CONGESTIVE CARDIOMYOPATHY
     Dosage: UNK
     Route: 065
  4. RAMIPRIL [Concomitant]
     Indication: CONGESTIVE CARDIOMYOPATHY
     Dosage: UNK
     Route: 065
  5. PREDNISONE TAB [Concomitant]
     Indication: T-CELL LYMPHOMA
     Dosage: UNK
     Route: 065
  6. MABCAMPATH [Suspect]
     Indication: T-CELL LYMPHOMA
     Dosage: UNK; 2 TIMES
     Route: 065
     Dates: start: 20081217
  7. MABCAMPATH [Suspect]
     Dosage: UNK; 2 TIMES
     Route: 065
     Dates: end: 20090116
  8. DOXORUBICIN HYDROCHLORIDE [Concomitant]
     Indication: T-CELL LYMPHOMA
     Dosage: UNK
     Route: 065
  9. VINCRISTINE [Concomitant]
     Indication: T-CELL LYMPHOMA
     Dosage: UNK
     Route: 065

REACTIONS (7)
  - POLYNEUROPATHY [None]
  - DYSPNOEA [None]
  - DIARRHOEA [None]
  - ASTHENIA [None]
  - THROMBOCYTOPENIA [None]
  - T-CELL LYMPHOMA [None]
  - DECREASED APPETITE [None]
